FAERS Safety Report 16401673 (Version 2)
Quarter: 2019Q2

REPORT INFORMATION
  Report Type: Spontaneous
  Country: CA (occurrence: CA)
  Receive Date: 20190606
  Receipt Date: 20190626
  Transmission Date: 20190711
  Serious: Yes (Disabling, Other)
  Sender: FDA-Public Use
  Company Number: CA-GILEAD-2019-0412202

PATIENT
  Age: 41 Year
  Sex: Male

DRUGS (1)
  1. GENVOYA [Suspect]
     Active Substance: COBICISTAT\ELVITEGRAVIR\EMTRICITABINE\TENOFOVIR ALAFENAMIDE FUMARATE
     Indication: PRODUCT USED FOR UNKNOWN INDICATION
     Dosage: UNK
     Route: 065
     Dates: end: 20190622

REACTIONS (5)
  - Abdominal distension [Unknown]
  - Off label use [Unknown]
  - Appetite disorder [Unknown]
  - Disability [Unknown]
  - Dyspepsia [Not Recovered/Not Resolved]
